FAERS Safety Report 5893772-0 (Version None)
Quarter: 2008Q3

REPORT INFORMATION
  Report Type: 
  Country: None (occurrence: None)
  Receive Date: 20080923
  Receipt Date: 20080915
  Transmission Date: 20090109
  Serious: Yes (Hospitalization)
  Sender: FDA-Public Use
  Company Number: BR-ABBOTT-06P-020-0346375-00

PATIENT
  Sex: Female
  Weight: 58 kg

DRUGS (10)
  1. HUMIRA [Suspect]
     Indication: RHEUMATOID ARTHRITIS
     Dosage: 3 APPLICATIONS
     Route: 058
     Dates: start: 20050101, end: 20050101
  2. SULFASALAZINE [Concomitant]
     Indication: RHEUMATOID ARTHRITIS
  3. INSULIN [Concomitant]
     Indication: DIABETES MELLITUS
  4. UNKNOWN STOMACH PROTECTION [Concomitant]
     Indication: PROPHYLAXIS AGAINST GASTROINTESTINAL ULCER
  5. DEXAMETHASONE [Concomitant]
     Indication: MUSCLE RELAXANT THERAPY
  6. SIMVASTATIN [Concomitant]
     Indication: BLOOD CHOLESTEROL INCREASED
  7. CALCIUM GLUCONATE [Concomitant]
     Indication: DRUG USE FOR UNKNOWN INDICATION
  8. FOLIC ACID [Concomitant]
     Indication: DRUG USE FOR UNKNOWN INDICATION
  9. ANTIHYPERTENSIVES [Concomitant]
     Indication: HYPERTENSION
  10. UNSPECIFIED MEDICATION [Concomitant]
     Indication: TACHYCARDIA

REACTIONS (11)
  - APHASIA [None]
  - CEREBROVASCULAR ACCIDENT [None]
  - COMA [None]
  - CONFUSIONAL STATE [None]
  - GAIT DISTURBANCE [None]
  - HEADACHE [None]
  - IMPAIRED HEALING [None]
  - VOMITING [None]
  - WOUND [None]
  - WOUND COMPLICATION [None]
  - WOUND INFECTION [None]
